FAERS Safety Report 5373433-7 (Version None)
Quarter: 2007Q2

REPORT INFORMATION
  Report Type: 
  Country: None (occurrence: None)
  Receive Date: 20070626
  Receipt Date: 20070626
  Transmission Date: 20071010
  Serious: Yes (Life-Threatening)
  Sender: FDA-Public Use
  Company Number: None

PATIENT
  Age: 24 Year
  Sex: Male
  Weight: 86.1834 kg

DRUGS (2)
  1. ZYPREXA [Suspect]
     Indication: SCHIZOAFFECTIVE DISORDER
     Dosage: 10MG EVERY NIGHT PO
     Route: 048
  2. DEPAKENE [Suspect]
     Dosage: 250MG EVERY NIGHT PO
     Route: 048

REACTIONS (3)
  - MIDDLE INSOMNIA [None]
  - MOVEMENT DISORDER [None]
  - NASAL CONGESTION [None]
